FAERS Safety Report 8223035-X (Version None)
Quarter: 2012Q1

REPORT INFORMATION
  Report Type: 
  Country: None (occurrence: None)
  Receive Date: 20120321
  Receipt Date: 20120313
  Transmission Date: 20120608
  Serious: Yes (Hospitalization)
  Sender: FDA-Public Use
  Company Number: US-BRISTOL-MYERS SQUIBB COMPANY-16119539

PATIENT
  Age: 65 Year
  Sex: Female
  Weight: 34 kg

DRUGS (2)
  1. IXEMPRA KIT [Suspect]
     Indication: UTERINE CANCER
     Dosage: 30MG/M2IV OVER 1HR ON DY 1X6 CYC 25MG/M2 OVER 1HR TOTAL COURSES:1 LAST DT:07JAN11
     Route: 042
     Dates: start: 20110107
  2. CARBOPLATIN [Suspect]
     Indication: UTERINE CANCER
     Dosage: AUC=6 IV OVER 30MIN ON DY 1X6 CYC AUC=5 IV OVER 30 MIN  TOTAL COURSES:1 LAST DT:07JAN11
     Route: 042
     Dates: start: 20110107

REACTIONS (4)
  - COLONIC OBSTRUCTION [None]
  - HYPOKALAEMIA [None]
  - ABDOMINAL DISTENSION [None]
  - VOMITING [None]
